FAERS Safety Report 7722100-0 (Version None)
Quarter: 2011Q3

REPORT INFORMATION
  Report Type: 
  Country: None (occurrence: None)
  Receive Date: 20110831
  Receipt Date: 20110822
  Transmission Date: 20111222
  Serious: Yes (Hospitalization, Other)
  Sender: FDA-Public Use
  Company Number: US-ASTRAZENECA-2011SE50578

PATIENT
  Sex: Male

DRUGS (16)
  1. ATROVENT [Concomitant]
     Dosage: SOLUTION VIA NEBULIZER ONE VIAL EVERY SIX HOURS
     Route: 055
  2. SENNA [Concomitant]
     Indication: CONSTIPATION
     Dosage: 1-4 (IN SINGLE OR DIVIDED DOSES) ONCE DAILY AS NEEDED
     Route: 048
  3. PLAVIX [Concomitant]
     Route: 048
  4. BETA-VAL [Concomitant]
     Dosage: 240 GM MAX WITH 240 GM EUCERIN THREE TIMES A DAY AS NEEDED
  5. FERROUS SULFATE TAB [Concomitant]
     Indication: ANAEMIA
     Dosage: 220 (44 FE) MG/5ML ELIX 6.8 MLIS EQUAL TO 300 MG DAILY WITH FOOD
     Route: 048
  6. ALBUTEROL SULFATE [Concomitant]
     Dosage: (25MG/3ML) 0.083% VIA NEBULIZER ONE VIAL EVERY TWO HOURS AS NEEDED
     Route: 055
  7. BISACODYL [Concomitant]
     Indication: CONSTIPATION
     Dosage: ONE EVERY THREE DAYS AS NEEDED
     Route: 054
  8. COLACE [Concomitant]
     Indication: CONSTIPATION
     Dosage: 1 TO 2 ONCE DAILY OOR TWICE DAILY AS NEEDED
     Route: 048
  9. OMEPRAZOLE [Suspect]
     Route: 048
  10. VERAPAMIL HCL [Concomitant]
     Route: 048
  11. CARAFATE [Concomitant]
     Route: 048
  12. LUNESTA [Concomitant]
     Route: 048
  13. GUAIFENESIN NR [Concomitant]
     Indication: COUGH
     Dosage: 100 MG/ 5 ML 4 TABLE SPOON TWICE DAILY AS NEEDED
     Route: 048
  14. BUDESONIDE [Concomitant]
     Dosage: 0.5 MG/ 2 ML VIA NEBULIZER TWICW A DAILY
     Route: 055
  15. ACETAMINOPHEN [Concomitant]
     Indication: PAIN
     Dosage: 1 TO 2 EVERY 4 TO 6 HOURLY AS NEEDED
     Route: 048
  16. ACETAMINOPHEN [Concomitant]
     Indication: PYREXIA
     Dosage: 1 TO 2 EVERY 4 TO 6 HOURLY AS NEEDED
     Route: 048

REACTIONS (38)
  - LOBAR PNEUMONIA [None]
  - DEAFNESS [None]
  - DEPRESSION [None]
  - EXCORIATION [None]
  - ASTHENIA [None]
  - BRONCHIAL HYPERREACTIVITY [None]
  - INSOMNIA [None]
  - GASTROENTERITIS VIRAL [None]
  - ARTHRALGIA [None]
  - TACHYCARDIA [None]
  - SEBORRHOEIC KERATOSIS [None]
  - HYPOKALAEMIA [None]
  - SYNCOPE [None]
  - BENIGN PROSTATIC HYPERPLASIA [None]
  - URINARY TRACT OBSTRUCTION [None]
  - HYPERTENSION [None]
  - LUNG NEOPLASM [None]
  - EPISTAXIS [None]
  - DERMATITIS ALLERGIC [None]
  - CEREBROVASCULAR ACCIDENT [None]
  - CHRONIC OBSTRUCTIVE PULMONARY DISEASE [None]
  - CHILLS [None]
  - ANXIETY [None]
  - DIVERTICULUM [None]
  - MIGRAINE WITHOUT AURA [None]
  - OEDEMA [None]
  - OSTEOARTHRITIS [None]
  - HYPONATRAEMIA [None]
  - HAEMORRHAGIC ANAEMIA [None]
  - PNEUMONIA [None]
  - OPEN WOUND [None]
  - GASTROOESOPHAGEAL REFLUX DISEASE [None]
  - POLLAKIURIA [None]
  - BURSITIS [None]
  - HAEMATURIA [None]
  - WEIGHT INCREASED [None]
  - RASH [None]
  - FLUID RETENTION [None]
